FAERS Safety Report 6113159-5 (Version None)
Quarter: 2009Q1

REPORT INFORMATION
  Report Type: 
  Country: None (occurrence: None)
  Receive Date: 20090312
  Receipt Date: 20090304
  Transmission Date: 20090719
  Serious: Yes (Other)
  Sender: FDA-Public Use
  Company Number: IE-ABBOTT-09P-229-0560395-00

PATIENT
  Age: 6 Year
  Sex: Female

DRUGS (3)
  1. EPILIM SYRUP [Suspect]
     Indication: EPILEPSY
  2. EPILIM SYRUP [Suspect]
     Dosage: LIQUID
  3. LITHIUM [Concomitant]
     Indication: DRUG USE FOR UNKNOWN INDICATION

REACTIONS (4)
  - CONVULSION [None]
  - DRUG LEVEL DECREASED [None]
  - INTENTIONAL DRUG MISUSE [None]
  - OFF LABEL USE [None]
